FAERS Safety Report 5824165-X (Version None)
Quarter: 2008Q3

REPORT INFORMATION
  Report Type: 
  Country: None (occurrence: None)
  Receive Date: 20080722
  Receipt Date: 20080709
  Transmission Date: 20090109
  Serious: Yes (Hospitalization)
  Sender: FDA-Public Use
  Company Number: FABR-1000312

PATIENT
  Age: 51 Year
  Sex: Male
  Weight: 81.8 kg

DRUGS (6)
  1. FABRAZYME [Suspect]
     Indication: FABRY'S DISEASE
     Dosage: 80 MG, Q2W
     Dates: start: 20020507
  2. FABRAZYME [Suspect]
  3. COZAAR [Concomitant]
  4. PREDNISOLONE ACETATE [Concomitant]
  5. ASPIRIN [Concomitant]
  6. LIPITOR [Concomitant]

REACTIONS (16)
  - AORTIC ANEURYSM [None]
  - AORTIC VALVE DISEASE [None]
  - ATRIAL FIBRILLATION [None]
  - ATRIAL FLUTTER [None]
  - BLOOD CREATININE INCREASED [None]
  - BLOOD PRESSURE SYSTOLIC DECREASED [None]
  - CARDIAC ARREST [None]
  - LARGE INTESTINE PERFORATION [None]
  - PERITONITIS [None]
  - PNEUMOMEDIASTINUM [None]
  - PNEUMOTHORAX [None]
  - POST PROCEDURAL COMPLICATION [None]
  - PROCEDURAL NAUSEA [None]
  - RENAL IMPAIRMENT [None]
  - SUBCUTANEOUS EMPHYSEMA [None]
  - VOLVULUS [None]
